FAERS Safety Report 17885123 (Version 1)
Quarter: 2020Q2

REPORT INFORMATION
  Report Type: Spontaneous
  Country: US (occurrence: US)
  Receive Date: 20200611
  Receipt Date: 20200611
  Transmission Date: 20200714
  Serious: No
  Sender: FDA-Public Use
  Company Number: US-SA-2020SA148430

PATIENT

DRUGS (1)
  1. PRALUENT [Suspect]
     Active Substance: ALIROCUMAB
     Indication: HYPERCHOLESTEROLAEMIA
     Dosage: 75 MG, QOW
     Dates: start: 202001, end: 20200408

REACTIONS (20)
  - Facial pain [Recovering/Resolving]
  - Rhinorrhoea [Not Recovered/Not Resolved]
  - Skin wrinkling [Not Recovered/Not Resolved]
  - Oropharyngeal pain [Recovering/Resolving]
  - Dry mouth [Recovering/Resolving]
  - Photosensitivity reaction [Not Recovered/Not Resolved]
  - Unevaluable event [Recovering/Resolving]
  - Lacrimation increased [Not Recovered/Not Resolved]
  - Mechanical urticaria [Not Recovered/Not Resolved]
  - Night sweats [Recovering/Resolving]
  - Erythema [Recovering/Resolving]
  - Rash [Not Recovered/Not Resolved]
  - Eye discharge [Not Recovered/Not Resolved]
  - Rash erythematous [Not Recovered/Not Resolved]
  - Skin atrophy [Not Recovered/Not Resolved]
  - Oral mucosal discolouration [Recovering/Resolving]
  - Abdominal pain upper [Recovering/Resolving]
  - Rash pruritic [Not Recovered/Not Resolved]
  - Back pain [Not Recovered/Not Resolved]
  - Low density lipoprotein decreased [Recovering/Resolving]
